FAERS Safety Report 10626166 (Version 1)
Quarter: 2014Q4

REPORT INFORMATION
  Report Type: Spontaneous
  Country: IT (occurrence: IT)
  Receive Date: 20141204
  Receipt Date: 20141204
  Transmission Date: 20150529
  Serious: Yes (Hospitalization)
  Sender: FDA-Public Use
  Company Number: IT-SA-2014SA164299

PATIENT
  Age: 85 Year
  Sex: Male

DRUGS (11)
  1. SERTRALINE [Concomitant]
     Active Substance: SERTRALINE HYDROCHLORIDE
  2. AZOPT [Concomitant]
     Active Substance: BRINZOLAMIDE
     Dosage: 10 MG / ML EYE DROPS SUSPENSION 1 VIAL (LDPE) 5 ML OCULAR USE
  3. UGUROL [Concomitant]
     Dosage: 500 MG / 5 ML SOLUTION FOR INJECTION FOR INTRAVENOUS USE, FOR ORAL AND LOCAL USE 5 VIALS
  4. BRUFEN [Suspect]
     Active Substance: IBUPROFEN
     Dosage: 800 MG PROLONGED RELEASE COATED TABLETS 20 TABLETS
     Route: 048
     Dates: start: 20141027, end: 20141027
  5. XANAX [Suspect]
     Active Substance: ALPRAZOLAM
     Dosage: 0.25 MG TABLET, 20 TABLETS
     Route: 048
     Dates: start: 20141027, end: 20141027
  6. LASIX [Suspect]
     Active Substance: FUROSEMIDE
     Dosage: 25 MG TABLET, 30 TABLET
     Route: 048
     Dates: start: 20141027, end: 20141027
  7. PANTOPRAZOLE [Concomitant]
     Active Substance: PANTOPRAZOLE SODIUM
  8. TARGIN [Concomitant]
     Active Substance: NALOXONE HYDROCHLORIDE\OXYCODONE HYDROCHLORIDE
     Dosage: 10 MG / 5 MG PROLONGED RELEASE TABLETS 28 TABLETS IN BLISTER
     Route: 048
  9. ALPHAGAN P [Concomitant]
     Active Substance: BRIMONIDINE TARTRATE
     Dosage: 1 VIAL OF 5 ML OF EYE DROPS SOLUTION
  10. LUMIGAN [Concomitant]
     Active Substance: BIMATOPROST
     Dosage: 1 VIAL 3 ML
  11. SALMETEDUR [Concomitant]
     Dosage: 25 MCG / PRESSURIZED SUSPENSION DELIVERY FOR INHALATION 1 CONTAINER UNDER PRESSURE 120 DELIVERIES

REACTIONS (2)
  - Drug abuse [Unknown]
  - Sopor [Recovered/Resolved]

NARRATIVE: CASE EVENT DATE: 20141027
